FAERS Safety Report 14984215 (Version 1)
Quarter: 2018Q2

REPORT INFORMATION
  Report Type: Spontaneous
  Country: DE (occurrence: DE)
  Receive Date: 20180607
  Receipt Date: 20180607
  Transmission Date: 20180711
  Serious: No
  Sender: FDA-Public Use
  Company Number: DE-JAZZ-2017-DE-015720

PATIENT

DRUGS (1)
  1. DEFITELIO [Suspect]
     Active Substance: DEFIBROTIDE SODIUM
     Indication: PULMONARY VENO-OCCLUSIVE DISEASE

REACTIONS (1)
  - Product use in unapproved indication [Unknown]
